FAERS Safety Report 15755533 (Version 1)
Quarter: 2018Q4

REPORT INFORMATION
  Report Type: Spontaneous
  Country: ES (occurrence: ES)
  Receive Date: 20181224
  Receipt Date: 20181224
  Transmission Date: 20190205
  Serious: Yes (Hospitalization)
  Sender: FDA-Public Use
  Company Number: ES-ACCORD-097519

PATIENT
  Age: 89 Year
  Sex: Female

DRUGS (2)
  1. FUROSEMIDE. [Suspect]
     Active Substance: FUROSEMIDE
     Indication: OEDEMA
     Dosage: 40 MG:2-1-0
     Route: 048
     Dates: start: 20170815, end: 20170905
  2. EPLERENONE. [Concomitant]
     Active Substance: EPLERENONE
     Indication: OEDEMA
     Dosage: 25 MG:1-0-1
     Route: 048
     Dates: start: 2016, end: 20170905

REACTIONS (2)
  - Hypokalaemia [Recovered/Resolved]
  - Acute kidney injury [Recovered/Resolved]

NARRATIVE: CASE EVENT DATE: 20170905
